FAERS Safety Report 9475629 (Version 1)
Quarter: 2013Q3

REPORT INFORMATION
  Report Type: Report from Study
  Country: BR (occurrence: BR)
  Receive Date: 20130826
  Receipt Date: 20130826
  Transmission Date: 20140515
  Serious: Yes (Other)
  Sender: FDA-Public Use
  Company Number: PHHY2013BR091548

PATIENT
  Sex: Female
  Weight: 49 kg

DRUGS (7)
  1. ACLASTA [Suspect]
     Indication: OSTEOPOROSIS
     Dosage: 5 MG, UNK
     Route: 042
     Dates: start: 2012
  2. DIOVAN TRIPLO [Concomitant]
     Dosage: UNK UKN, UNK
     Dates: start: 2010
  3. PURAN T4 [Concomitant]
     Dosage: UNK UKN, UNK
     Dates: start: 2013
  4. PANTOPRAZOLE [Concomitant]
     Dosage: UNK UKN, UNK
     Dates: start: 2012
  5. DONEPEZIL HCL [Concomitant]
     Dosage: UNK UKN, UNK
     Dates: start: 2008
  6. PROTOS (STRONTIUM RANELATE) [Concomitant]
     Dosage: UNK UKN, UNK
     Dates: start: 2011
  7. CAL + D [Concomitant]
     Dosage: UNK UKN, UNK
     Dates: start: 2011

REACTIONS (4)
  - General physical health deterioration [Recovering/Resolving]
  - Swelling [Recovering/Resolving]
  - Bone swelling [Recovering/Resolving]
  - Pain [Recovering/Resolving]
